FAERS Safety Report 7552224-2 (Version None)
Quarter: 2011Q2

REPORT INFORMATION
  Report Type: 
  Country: None (occurrence: None)
  Receive Date: 20110616
  Receipt Date: 20030822
  Transmission Date: 20111010
  Serious: Yes (Death)
  Sender: FDA-Public Use
  Company Number: PHHO2003JP04414

PATIENT
  Sex: Male
  Weight: 7.6 kg

DRUGS (6)
  1. TACROLIMUS [Concomitant]
     Dosage: UNKNOWN
     Route: 048
     Dates: start: 20010415
  2. GUSPERIMUS [Concomitant]
     Dosage: UNK
  3. MIZORIBINE [Concomitant]
     Dosage: 8 MG, QD
     Route: 048
     Dates: start: 20010404, end: 20010415
  4. NEORAL [Suspect]
     Indication: LIVER TRANSPLANT
     Dosage: 60 - 35 MG, DAILY
     Route: 048
     Dates: start: 20010330, end: 20010415
  5. TACROLIMUS [Concomitant]
     Indication: LIVER TRANSPLANT
     Dosage: UNK
     Route: 048
  6. METHYLPREDNISOLONE [Concomitant]
     Dosage: 80 - 40 MG, DAILY
     Route: 042
     Dates: start: 20010331, end: 20010415

REACTIONS (5)
  - HEPATITIS [None]
  - ASCITES [None]
  - HEPATIC FAILURE [None]
  - SPLENOMEGALY [None]
  - LIVER TRANSPLANT REJECTION [None]
